FAERS Safety Report 17971790 (Version 1)
Quarter: 2020Q3

REPORT INFORMATION
  Report Type: Other
  Country: IT (occurrence: IT)
  Receive Date: 20200701
  Receipt Date: 20200701
  Transmission Date: 20201103
  Serious: Yes (Hospitalization)
  Sender: FDA-Public Use
  Company Number: IT-B.BRAUN MEDICAL INC.-2086965

PATIENT
  Age: 64 Year
  Sex: Male

DRUGS (2)
  1. XELOX = OXALIPLATIN AND CAPECITABINE [Suspect]
     Active Substance: CAPECITABINE\OXALIPLATIN
  2. DEXTROSE INJECTIONS USP 0264?7510?00 0264?7510?20 [Suspect]
     Active Substance: DEXTROSE

REACTIONS (2)
  - Hypokalaemia [Recovered/Resolved]
  - Peripheral motor neuropathy [Recovering/Resolving]
